FAERS Safety Report 16339221 (Version 1)
Quarter: 2019Q2

REPORT INFORMATION
  Report Type: Spontaneous
  Country: US (occurrence: US)
  Receive Date: 20190521
  Receipt Date: 20190521
  Transmission Date: 20190711
  Serious: Yes (Hospitalization, Other)
  Sender: FDA-Public Use
  Company Number: US-SUNOVION-2019SUN002105

PATIENT
  Sex: Female

DRUGS (2)
  1. UTIBRON NEOHALER [Suspect]
     Active Substance: GLYCOPYRROLATE\INDACATEROL MALEATE
     Indication: CHRONIC OBSTRUCTIVE PULMONARY DISEASE
     Dosage: UNK
     Route: 055
  2. ALBUTEROL. [Suspect]
     Active Substance: ALBUTEROL
     Route: 065

REACTIONS (11)
  - Dyspnoea [Unknown]
  - Breathing-related sleep disorder [Unknown]
  - Wheezing [Unknown]
  - Pneumonia [Unknown]
  - Influenza [Unknown]
  - Chronic obstructive pulmonary disease [Unknown]
  - Obstructive airways disorder [Unknown]
  - Respiratory failure [Unknown]
  - Bronchitis [Unknown]
  - Emphysema [Unknown]
  - Deep vein thrombosis [Unknown]
